FAERS Safety Report 23525210 (Version 1)
Quarter: 2024Q1

REPORT INFORMATION
  Report Type: Spontaneous
  Country: US (occurrence: US)
  Receive Date: 20240215
  Receipt Date: 20240215
  Transmission Date: 20240410
  Serious: Yes (Hospitalization)
  Sender: FDA-Public Use
  Company Number: US-COHERUS BIOSCIENCES, Inc.-2024-COH-US000063

PATIENT

DRUGS (3)
  1. UDENYCA [Suspect]
     Active Substance: PEGFILGRASTIM-CBQV
     Indication: Prophylaxis
     Dosage: 6 MG, Q4WEEKS
     Route: 058
     Dates: start: 20231212
  2. UDENYCA [Suspect]
     Active Substance: PEGFILGRASTIM-CBQV
     Dosage: 6 MG, Q4WEEKS
     Route: 058
     Dates: start: 20240102
  3. UDENYCA [Suspect]
     Active Substance: PEGFILGRASTIM-CBQV
     Dosage: 6 MG, Q4WEEKS
     Route: 058
     Dates: start: 20240130

REACTIONS (3)
  - Febrile neutropenia [Not Recovered/Not Resolved]
  - Product dose omission issue [Recovered/Resolved]
  - Product quality issue [Unknown]

NARRATIVE: CASE EVENT DATE: 20240123
